FAERS Safety Report 24163800 (Version 1)
Quarter: 2024Q3

REPORT INFORMATION
  Report Type: Report from Study
  Country: US (occurrence: None)
  Receive Date: 20240801
  Receipt Date: 20240801
  Transmission Date: 20241016
  Serious: Yes (Hospitalization, Other)
  Sender: ASTRAZENECA
  Company Number: 2024A147123

PATIENT
  Age: 22706 Day
  Sex: Female
  Weight: 67 kg

DRUGS (1)
  1. TAGRISSO [Suspect]
     Active Substance: OSIMERTINIB
     Indication: Non-small cell lung cancer
     Route: 048
     Dates: start: 20220603

REACTIONS (13)
  - Bone marrow failure [Unknown]
  - Toxicity to various agents [Unknown]
  - Aplastic anaemia [Unknown]
  - Product dose omission issue [Unknown]
  - Red blood cell abnormality [Unknown]
  - Haemoglobin decreased [Unknown]
  - Haematocrit decreased [Unknown]
  - Blood glucose increased [Unknown]
  - Platelet disorder [Unknown]
  - Protein deficiency [Unknown]
  - Blood magnesium decreased [Unknown]
  - Mean platelet volume increased [Unknown]
  - Blood calcium decreased [Unknown]

NARRATIVE: CASE EVENT DATE: 20240501
